FAERS Safety Report 10472413 (Version 1)
Quarter: 2014Q3

REPORT INFORMATION
  Report Type: Spontaneous
  Country: US (occurrence: None)
  Receive Date: 20140923
  Receipt Date: 20140923
  Transmission Date: 20150326
  Serious: Yes (Hospitalization, Disabling)
  Sender: FDA-Public Use
  Company Number: None

PATIENT
  Age: 58 Year
  Sex: Male
  Weight: 81.65 kg

DRUGS (1)
  1. SULFASALAZINE 500 MG CVS PHARMACY [Suspect]
     Active Substance: SULFASALAZINE
     Indication: PSORIATIC ARTHROPATHY
     Dosage: 4 TABLETS PER DAY
     Route: 048
     Dates: start: 20140910, end: 20140916

REACTIONS (11)
  - Blindness [None]
  - Fall [None]
  - Product odour abnormal [None]
  - Headache [None]
  - Diarrhoea [None]
  - Vomiting [None]
  - Nausea [None]
  - Dizziness [None]
  - Tunnel vision [None]
  - Abdominal pain [None]
  - Testicular pain [None]

NARRATIVE: CASE EVENT DATE: 20140915
